APPROVED DRUG PRODUCT: NESACAINE-MPF
Active Ingredient: CHLOROPROCAINE HYDROCHLORIDE
Strength: 2%
Dosage Form/Route: INJECTABLE;INJECTION
Application: N009435 | Product #006 | TE Code: AP
Applicant: FRESENIUS KABI USA LLC
Approved: May 2, 1996 | RLD: Yes | RS: Yes | Type: RX